FAERS Safety Report 24152579 (Version 1)
Quarter: 2024Q3

REPORT INFORMATION
  Report Type: Spontaneous
  Country: US (occurrence: US)
  Receive Date: 20240730
  Receipt Date: 20240730
  Transmission Date: 20241016
  Serious: No
  Sender: INCYTE
  Company Number: US-INCYTE CORPORATION-2024IN007733

PATIENT

DRUGS (1)
  1. JAKAFI [Suspect]
     Active Substance: RUXOLITINIB
     Indication: Myelofibrosis
     Dosage: UNK
     Route: 048
     Dates: end: 202405

REACTIONS (7)
  - Malaise [Unknown]
  - White blood cell count decreased [Unknown]
  - Hypoacusis [Unknown]
  - Memory impairment [Unknown]
  - Hypersomnia [Unknown]
  - Fatigue [Unknown]
  - Sleep disorder [Unknown]
